FAERS Safety Report 5165655-5 (Version None)
Quarter: 2006Q4

REPORT INFORMATION
  Report Type: 
  Country: None (occurrence: None)
  Receive Date: 20061128
  Receipt Date: 20061116
  Transmission Date: 20070319
  Serious: Yes (Disabling)
  Sender: FDA-Public Use
  Company Number: HQWYE828117NOV06

PATIENT
  Age: 28 Year
  Sex: Female

DRUGS (1)
  1. LEVONORGESTREL AND ETHINYL ESTRADIOL [Suspect]
     Dosage: 1 TABLET 1X PER 1 DAY
     Route: 048
     Dates: end: 20060601

REACTIONS (2)
  - OPTIC NEURITIS [None]
  - VISUAL FIELD DEFECT [None]
